FAERS Safety Report 7039101-0 (Version None)
Quarter: 2010Q4

REPORT INFORMATION
  Report Type: 
  Country: None (occurrence: None)
  Receive Date: 20101012
  Receipt Date: 20101007
  Transmission Date: 20110411
  Serious: Yes (Life-Threatening, Hospitalization, Other)
  Sender: FDA-Public Use
  Company Number: US-ELI_LILLY_AND_COMPANY-US201010001850

PATIENT
  Sex: Female

DRUGS (3)
  1. HUMALOG MIX 75/25 [Suspect]
     Indication: DIABETES MELLITUS
     Dosage: 70 U, EACH MORNING
  2. HUMALOG MIX 75/25 [Suspect]
     Dosage: 50 U, EACH EVENING
  3. VIOXX [Concomitant]

REACTIONS (13)
  - ERYTHEMA [None]
  - EYE HAEMORRHAGE [None]
  - GASTROINTESTINAL DISORDER [None]
  - HYPOACUSIS [None]
  - INJECTION SITE PAIN [None]
  - LETHARGY [None]
  - OEDEMA PERIPHERAL [None]
  - OFF LABEL USE [None]
  - PAIN IN EXTREMITY [None]
  - SKIN DISCOLOURATION [None]
  - TRANSIENT ISCHAEMIC ATTACK [None]
  - VISION BLURRED [None]
  - VISUAL ACUITY REDUCED [None]
